FAERS Safety Report 18373907 (Version 1)
Quarter: 2020Q4

REPORT INFORMATION
  Report Type: Report from Study
  Country: None (occurrence: CA)
  Receive Date: 20201013
  Receipt Date: 20201013
  Transmission Date: 20210114
  Serious: Yes (Hospitalization, Other)
  Sender: FDA-Public Use
  Company Number: CA-ABBVIE-20K-028-3600896-00

PATIENT
  Age: 67 Year
  Sex: Male

DRUGS (1)
  1. HUMIRA [Suspect]
     Active Substance: ADALIMUMAB
     Indication: PSORIASIS
     Route: 058
     Dates: start: 20180711

REACTIONS (4)
  - Myocardial infarction [Recovered/Resolved]
  - Injection site haematoma [Not Recovered/Not Resolved]
  - Arterial occlusive disease [Unknown]
  - Pericarditis [Unknown]

NARRATIVE: CASE EVENT DATE: 2020
